FAERS Safety Report 8201017-1 (Version None)
Quarter: 2012Q1

REPORT INFORMATION
  Report Type: 
  Country: None (occurrence: None)
  Receive Date: 20120312
  Receipt Date: 20120306
  Transmission Date: 20120608
  Serious: No
  Sender: FDA-Public Use
  Company Number: US-PFIZER INC-2012060959

PATIENT
  Sex: Female

DRUGS (13)
  1. PREVACID [Suspect]
     Dosage: UNK
  2. PRAVACHOL [Suspect]
     Dosage: UNK
  3. POTASSIUM PENICILLIN G [Suspect]
     Dosage: UNK
  4. LIPITOR [Suspect]
     Dosage: UNK
  5. PRILOSEC [Suspect]
     Dosage: UNK
  6. LOVASTATIN [Suspect]
     Dosage: UNK
  7. NOVOCAIN [Suspect]
     Dosage: UNK
  8. ACIPHEX [Suspect]
     Dosage: UNK
  9. BACTRIM [Suspect]
     Dosage: UNK
  10. PROTONIX [Suspect]
     Dosage: UNK
  11. BAYCOL [Suspect]
     Dosage: UNK
  12. ZOCOR [Suspect]
     Dosage: UNK
  13. ZETIA [Suspect]
     Dosage: UNK

REACTIONS (1)
  - DRUG HYPERSENSITIVITY [None]
